FAERS Safety Report 4832168-7 (Version None)
Quarter: 2005Q4

REPORT INFORMATION
  Report Type: 
  Country: None (occurrence: None)
  Receive Date: 20051116
  Receipt Date: 20051111
  Transmission Date: 20060501
  Serious: Yes (Other)
  Sender: FDA-Public Use
  Company Number: 200510557BYL

PATIENT
  Age: 67 Year
  Sex: Male

DRUGS (2)
  1. ADALAT [Suspect]
     Indication: INTENTIONAL DRUG MISUSE
     Dosage: 10 MG, ONCE, ORAL
     Route: 048
     Dates: start: 20051110
  2. MYSLEE [Concomitant]

REACTIONS (3)
  - AMNESIA [None]
  - DELIRIUM [None]
  - WRONG DRUG ADMINISTERED [None]
